FAERS Safety Report 7041574-4 (Version None)
Quarter: 2010Q4

REPORT INFORMATION
  Report Type: 
  Country: None (occurrence: None)
  Receive Date: 20101013
  Receipt Date: 20100525
  Transmission Date: 20110411
  Serious: No
  Sender: FDA-Public Use
  Company Number: US-ASTRAZENECA-2010SE24054

PATIENT
  Age: 71 Year
  Sex: Female
  Weight: 61.7 kg

DRUGS (5)
  1. SYMBICORT [Suspect]
     Indication: CHRONIC OBSTRUCTIVE PULMONARY DISEASE
     Route: 055
     Dates: start: 20091101
  2. LISINOPRIL [Concomitant]
  3. ASPIRIN [Concomitant]
  4. POTASSIUM [Concomitant]
  5. IBUPROFEN [Concomitant]

REACTIONS (3)
  - DYSPHONIA [None]
  - HYPERPHAGIA [None]
  - WEIGHT INCREASED [None]
